FAERS Safety Report 5646144-8 (Version None)
Quarter: 2008Q1

REPORT INFORMATION
  Report Type: 
  Country: None (occurrence: None)
  Receive Date: 20080229
  Receipt Date: 20080219
  Transmission Date: 20080703
  Serious: Yes (Other)
  Sender: FDA-Public Use
  Company Number: FR-PFIZER INC-2008017083

PATIENT
  Age: 50 Year
  Sex: Female

DRUGS (1)
  1. CHANTIX [Suspect]
     Indication: SMOKING CESSATION THERAPY

REACTIONS (4)
  - ENURESIS [None]
  - FATIGUE [None]
  - MYALGIA [None]
  - URINARY TRACT INFECTION [None]
